FAERS Safety Report 16022606 (Version 6)
Quarter: 2019Q3

REPORT INFORMATION
  Report Type: Spontaneous
  Country: CA (occurrence: CA)
  Receive Date: 20190301
  Receipt Date: 20190924
  Transmission Date: 20191004
  Serious: Yes (Life-Threatening, Hospitalization, Disabling, Other)
  Sender: FDA-Public Use
  Company Number: CA-AUROBINDO-AUR-APL-2019-011078

PATIENT
  Age: 12 Day
  Sex: Male
  Weight: 3 kg

DRUGS (26)
  1. LAMOTRIGINE TABLET [Suspect]
     Active Substance: LAMOTRIGINE
     Indication: BIPOLAR DISORDER
     Dosage: 250 MILLIGRAM, ONCE A DAY
     Route: 064
  2. ACETAMINOPHEN AND CODEINE [Suspect]
     Active Substance: ACETAMINOPHEN\CODEINE PHOSPHATE
     Indication: PRODUCT USED FOR UNKNOWN INDICATION
     Dosage: UNK
     Route: 063
  3. LAMOTRIGINE TABLET [Suspect]
     Active Substance: LAMOTRIGINE
     Dosage: 250 MILLIGRAM, ONCE A DAY
     Route: 063
  4. SERTRALINE [Suspect]
     Active Substance: SERTRALINE HYDROCHLORIDE
     Dosage: UNK
     Route: 063
  5. ARIPIPRAZOLE TABLETS [Suspect]
     Active Substance: ARIPIPRAZOLE
     Indication: PRODUCT USED FOR UNKNOWN INDICATION
     Route: 063
  6. ABILIFY [Suspect]
     Active Substance: ARIPIPRAZOLE
     Indication: BIPOLAR DISORDER
     Dosage: 15 MILLIGRAM, ONCE A DAY
     Route: 064
  7. FOLIC ACID. [Suspect]
     Active Substance: FOLIC ACID
     Indication: PRODUCT USED FOR UNKNOWN INDICATION
     Dosage: UNK
     Route: 064
  8. NAPROXEN. [Suspect]
     Active Substance: NAPROXEN
     Dosage: UNK
     Route: 063
  9. FOLIC ACID. [Suspect]
     Active Substance: FOLIC ACID
     Dosage: UNK
     Route: 064
  10. ACETAMINOPHEN. [Concomitant]
     Active Substance: ACETAMINOPHEN
     Indication: PRODUCT USED FOR UNKNOWN INDICATION
     Dosage: UNK
     Route: 064
  11. ARIPIPRAZOLE. [Suspect]
     Active Substance: ARIPIPRAZOLE
     Indication: PRODUCT USED FOR UNKNOWN INDICATION
     Dosage: UNK
     Route: 064
  12. LEVOTHYROXINE. [Suspect]
     Active Substance: LEVOTHYROXINE
     Indication: BIPOLAR DISORDER
     Dosage: 50 MILLIGRAM, ONCE A DAY
     Route: 064
  13. SERTRALINE [Suspect]
     Active Substance: SERTRALINE HYDROCHLORIDE
     Indication: BIPOLAR DISORDER
     Dosage: 100 MILLIGRAM, ONCE A DAY
     Route: 064
  14. ACETAMINOPHEN AND CODEINE [Suspect]
     Active Substance: ACETAMINOPHEN\CODEINE PHOSPHATE
     Dosage: UNK
     Route: 064
  15. DOCUSATE SODIUM. [Suspect]
     Active Substance: DOCUSATE SODIUM
     Indication: PRODUCT USED FOR UNKNOWN INDICATION
     Dosage: UNK
     Route: 063
  16. SERTRALINE [Suspect]
     Active Substance: SERTRALINE HYDROCHLORIDE
     Dosage: 100 MILLIGRAM, ONCE A DAY
     Route: 063
  17. SERTRALINE [Suspect]
     Active Substance: SERTRALINE HYDROCHLORIDE
     Indication: PRODUCT USED FOR UNKNOWN INDICATION
     Dosage: UNK
     Route: 064
  18. ABILIFY [Suspect]
     Active Substance: ARIPIPRAZOLE
     Dosage: 15 MILLIGRAM, ONCE A DAY
     Route: 063
  19. ACETAMINOPHEN AND CODEINE [Suspect]
     Active Substance: ACETAMINOPHEN\CODEINE PHOSPHATE
     Indication: PRODUCT USED FOR UNKNOWN INDICATION
     Dosage: UNK
     Route: 063
  20. DOCUSATE SODIUM. [Suspect]
     Active Substance: DOCUSATE SODIUM
     Indication: PRODUCT USED FOR UNKNOWN INDICATION
     Dosage: UNK
     Route: 064
  21. DOCUSATE SODIUM. [Suspect]
     Active Substance: DOCUSATE SODIUM
     Dosage: UNK
     Route: 063
  22. FOLIC ACID. [Suspect]
     Active Substance: FOLIC ACID
     Dosage: UNK
     Route: 063
  23. LEVOTHYROXINE. [Suspect]
     Active Substance: LEVOTHYROXINE
     Dosage: 50 MICROGRAM, ONCE A DAY
     Route: 063
  24. LEVOTHYROXINE. [Suspect]
     Active Substance: LEVOTHYROXINE
     Dosage: 50 MICROGRAM, ONCE A DAY
     Route: 064
  25. NAPROXEN. [Suspect]
     Active Substance: NAPROXEN
     Indication: BIPOLAR DISORDER
     Dosage: 100 MILLIGRAM, ONCE A DAY
     Route: 064
  26. FOLIC ACID. [Suspect]
     Active Substance: FOLIC ACID
     Indication: PRODUCT USED FOR UNKNOWN INDICATION
     Dosage: UNK
     Route: 063

REACTIONS (31)
  - Dehydration [Recovered/Resolved]
  - Necrosis [Recovered/Resolved]
  - Rhabdomyolysis [Recovered/Resolved]
  - Maternal exposure during breast feeding [Recovered/Resolved]
  - Petechiae [Recovered/Resolved]
  - Disseminated intravascular coagulation [Recovered/Resolved]
  - Alanine aminotransferase increased [Recovered/Resolved]
  - Blood glucose increased [Recovered/Resolved]
  - Hypokinesia [Recovered/Resolved]
  - Mucosal disorder [Recovered/Resolved]
  - Weight decrease neonatal [Recovered/Resolved]
  - Hypernatraemia [Recovered/Resolved]
  - Partial seizures [Recovered/Resolved]
  - Peripheral artery thrombosis [Recovered/Resolved]
  - Hypovolaemic shock [Recovered/Resolved]
  - Acidosis [Recovered/Resolved]
  - Hyponatraemia [Recovered/Resolved]
  - Irritability [Recovered/Resolved]
  - Moaning [Recovered/Resolved]
  - Pallor [Recovered/Resolved]
  - Livedo reticularis [Recovered/Resolved]
  - Gangrene neonatal [Recovered/Resolved]
  - Gangrene [Recovered/Resolved]
  - Acute kidney injury [Recovered/Resolved]
  - Foetal exposure during pregnancy [Recovered/Resolved]
  - Skin turgor decreased [Recovered/Resolved]
  - Exposure via breast milk [Recovered/Resolved]
  - Weight decreased [Recovered/Resolved]
  - Somnolence [Recovered/Resolved]
  - Skin discolouration [Recovered/Resolved]
  - Hyporesponsive to stimuli [Recovered/Resolved]
